FAERS Safety Report 25873818 (Version 1)
Quarter: 2025Q4

REPORT INFORMATION
  Report Type: Spontaneous
  Country: US (occurrence: US)
  Receive Date: 20251002
  Receipt Date: 20251002
  Transmission Date: 20260118
  Serious: No
  Sender: INTRA-CELLULAR THERAPIES
  Company Number: US-INTRA-CELLULAR THERAPIES, INC.-2025ICT01296

PATIENT
  Sex: Female

DRUGS (2)
  1. CAPLYTA [Suspect]
     Active Substance: LUMATEPERONE
     Indication: Bipolar disorder
     Dosage: UNK
     Dates: start: 20250706, end: 202507
  2. UNSPECIFIED ADD MEDICATION [Concomitant]

REACTIONS (2)
  - Sedation [Unknown]
  - Somnolence [Unknown]

NARRATIVE: CASE EVENT DATE: 20250701
